FAERS Safety Report 15379253 (Version 1)
Quarter: 2018Q3

REPORT INFORMATION
  Report Type: Report from Study
  Country: DK (occurrence: DK)
  Receive Date: 20180913
  Receipt Date: 20180913
  Transmission Date: 20181010
  Serious: Yes (Hospitalization)
  Sender: FDA-Public Use
  Company Number: DK-SA-2018SA156025

PATIENT
  Age: 21 Year
  Sex: Female

DRUGS (10)
  1. TOUJEO [Suspect]
     Active Substance: INSULIN GLARGINE
     Dosage: 11 IU
     Route: 058
  2. TOUJEO [Suspect]
     Active Substance: INSULIN GLARGINE
     Dosage: UNK
     Route: 058
  3. TOUJEO [Suspect]
     Active Substance: INSULIN GLARGINE
     Dosage: 30 IU
     Route: 058
  4. NOVORAPID [Suspect]
     Active Substance: INSULIN ASPART
     Indication: TYPE 1 DIABETES MELLITUS
     Dosage: 24 IU, QD
     Route: 058
  5. NOVORAPID [Suspect]
     Active Substance: INSULIN ASPART
     Dosage: 20 IU, QD
     Route: 058
     Dates: start: 199801
  6. NOVORAPID [Suspect]
     Active Substance: INSULIN ASPART
     Dosage: UNK
     Route: 058
  7. TOUJEO [Suspect]
     Active Substance: INSULIN GLARGINE
     Indication: TYPE 1 DIABETES MELLITUS
     Dosage: 22 IU, QD
     Route: 058
     Dates: start: 201509, end: 201509
  8. TOUJEO [Suspect]
     Active Substance: INSULIN GLARGINE
     Dosage: UNK
  9. NOVORAPID [Suspect]
     Active Substance: INSULIN ASPART
     Dosage: 26 IU
     Route: 058
  10. FOLIC ACID. [Concomitant]
     Active Substance: FOLIC ACID
     Indication: PROPHYLAXIS
     Dosage: UNK
     Dates: start: 20170830

REACTIONS (5)
  - Abdominal pain upper [Recovered/Resolved]
  - Exposure during pregnancy [Unknown]
  - Hypoglycaemia [Recovered/Resolved]
  - Ketonuria [Recovered/Resolved]
  - Decreased insulin requirement [Recovered/Resolved]

NARRATIVE: CASE EVENT DATE: 20170722
